FAERS Safety Report 8990989 (Version 1)
Quarter: 2012Q4

REPORT INFORMATION
  Report Type: Spontaneous
  Country: US (occurrence: None)
  Receive Date: 20121227
  Receipt Date: 20121227
  Transmission Date: 20130627
  Serious: Yes (Life-Threatening, Other)
  Sender: FDA-Public Use
  Company Number: None

PATIENT
  Age: 48 Year
  Sex: Female
  Weight: 102.51 kg

DRUGS (2)
  1. VENLAFAXINE HCL [Suspect]
     Indication: PAIN
     Route: 048
     Dates: start: 20121212, end: 20121218
  2. VENLAFAXINE HCL [Suspect]
     Indication: DEPRESSION
     Route: 048
     Dates: start: 20121212, end: 20121218

REACTIONS (10)
  - Loss of consciousness [None]
  - Hypotension [None]
  - Chest discomfort [None]
  - Dyspnoea [None]
  - Fatigue [None]
  - Body temperature decreased [None]
  - Chills [None]
  - Muscle spasms [None]
  - Condition aggravated [None]
  - Unevaluable event [None]
